FAERS Safety Report 14234927 (Version 2)
Quarter: 2017Q4

REPORT INFORMATION
  Report Type: Spontaneous
  Country: JP (occurrence: JP)
  Receive Date: 20171129
  Receipt Date: 20171211
  Transmission Date: 20180321
  Serious: Yes (Hospitalization, Other)
  Sender: FDA-Public Use
  Company Number: JP-SUCAMPO PHARMACEUTICALS INC.-SPI201701312

PATIENT
  Age: 14 Year
  Sex: Female
  Weight: 33 kg

DRUGS (11)
  1. KENEI G [Concomitant]
     Active Substance: GLYCERIN
     Indication: COLITIS ULCERATIVE
     Dosage: UNK
     Route: 054
     Dates: start: 20171014, end: 20171018
  2. MAGNESIUM OXIDE. [Concomitant]
     Active Substance: MAGNESIUM OXIDE
     Indication: COLITIS ULCERATIVE
     Dosage: UNK MG, UNK
     Route: 048
     Dates: start: 20171014, end: 20171018
  3. AMITIZA [Suspect]
     Active Substance: LUBIPROSTONE
     Indication: CONSTIPATION
     Dosage: BID
     Route: 048
     Dates: start: 20171014, end: 20171018
  4. HERBAL MEDICINE [Concomitant]
     Indication: COLITIS ULCERATIVE
     Dosage: UNK
     Route: 048
     Dates: start: 20171014, end: 20171018
  5. PREDNISOLONE. [Concomitant]
     Active Substance: PREDNISOLONE
     Indication: COLITIS ULCERATIVE
     Dosage: UNK
     Route: 048
     Dates: start: 20171014, end: 20171016
  6. HERBAL MEDICINE [Concomitant]
     Indication: COLITIS ULCERATIVE
     Dosage: UNK
     Route: 048
     Dates: start: 20171014, end: 20171018
  7. FAMOTIDINE. [Concomitant]
     Active Substance: FAMOTIDINE
     Indication: COLITIS ULCERATIVE
     Dosage: UNK
     Route: 048
     Dates: start: 20171014, end: 20171018
  8. ALENDRONATE [Concomitant]
     Active Substance: ALENDRONATE SODIUM
     Indication: COLITIS ULCERATIVE
     Dosage: 5 MG, QD
     Route: 048
     Dates: start: 20171014, end: 20171018
  9. PROPIVERINE HCL [Concomitant]
     Indication: COLITIS ULCERATIVE
     Dosage: UNK
     Route: 048
     Dates: start: 20171014, end: 20171018
  10. CALONAL [Concomitant]
     Active Substance: ACETAMINOPHEN
     Indication: COLITIS ULCERATIVE
     Dosage: 200 MG, QD
     Route: 048
     Dates: start: 20171014, end: 20171014
  11. BACTRAMIN [Concomitant]
     Active Substance: SULFAMETHOXAZOLE\TRIMETHOPRIM
     Indication: COLITIS ULCERATIVE
     Dosage: 1 DF, UNK
     Route: 048
     Dates: start: 20171014, end: 20171018

REACTIONS (6)
  - Headache [Recovered/Resolved]
  - Off label use [Unknown]
  - Nausea [Recovered/Resolved]
  - Oropharyngeal pain [Recovered/Resolved]
  - Colitis ulcerative [Recovered/Resolved]
  - Nasopharyngitis [Unknown]

NARRATIVE: CASE EVENT DATE: 20171015
